FAERS Safety Report 13847135 (Version 3)
Quarter: 2017Q3

REPORT INFORMATION
  Report Type: Report from Study
  Country: CA (occurrence: CA)
  Receive Date: 20170808
  Receipt Date: 20170824
  Transmission Date: 20171127
  Serious: Yes (Death, Hospitalization)
  Sender: FDA-Public Use
  Company Number: CA-ACTELION-A-US2017-157683

PATIENT
  Age: 76 Year
  Sex: Female
  Weight: 52.15 kg

DRUGS (7)
  1. SYNTHROID [Concomitant]
     Active Substance: LEVOTHYROXINE SODIUM
  2. VASOTEC [Concomitant]
     Active Substance: ENALAPRIL MALEATE
  3. ZOPICLONE [Concomitant]
     Active Substance: ZOPICLONE
  4. AMIODARONE [Concomitant]
     Active Substance: AMIODARONE
  5. XARELTO [Concomitant]
     Active Substance: RIVAROXABAN
  6. CARIPUL [Suspect]
     Active Substance: EPOPROSTENOL
     Indication: PULMONARY ARTERIAL HYPERTENSION
     Dosage: 3 MG, UNK
     Route: 042
     Dates: start: 20160318
  7. SILDENAFIL. [Concomitant]
     Active Substance: SILDENAFIL
     Indication: PULMONARY ARTERIAL HYPERTENSION

REACTIONS (4)
  - Pneumonia [Not Recovered/Not Resolved]
  - Transfusion [Not Recovered/Not Resolved]
  - Death [Fatal]
  - General physical health deterioration [Not Recovered/Not Resolved]

NARRATIVE: CASE EVENT DATE: 20170508
